FAERS Safety Report 6606450-7 (Version None)
Quarter: 2010Q1

REPORT INFORMATION
  Report Type: 
  Country: None (occurrence: None)
  Receive Date: 20100226
  Receipt Date: 20100215
  Transmission Date: 20100710
  Serious: Yes (Other)
  Sender: FDA-Public Use
  Company Number: PHEH2008US08657

PATIENT
  Sex: Female

DRUGS (7)
  1. ZOMETA [Suspect]
     Dosage: UNK
  2. FEMARA [Concomitant]
     Dosage: 2.5 MG TABLETS
  3. TAMOXIFEN CITRATE [Concomitant]
  4. ADRIAMYCIN PFS [Concomitant]
  5. CYTOXAN [Concomitant]
  6. TAXOL [Concomitant]
  7. RADIATION [Concomitant]

REACTIONS (18)
  - ANHEDONIA [None]
  - ANXIETY [None]
  - BONE DISORDER [None]
  - CELLULITIS STREPTOCOCCAL [None]
  - DISCOMFORT [None]
  - EATING DISORDER [None]
  - EMOTIONAL DISTRESS [None]
  - INFLUENZA [None]
  - INJURY [None]
  - MALIGNANT NEOPLASM PROGRESSION [None]
  - MASTECTOMY [None]
  - METASTASES TO BONE [None]
  - OSTEONECROSIS [None]
  - PAIN [None]
  - PERIODONTITIS [None]
  - RESPIRATORY TRACT INFECTION [None]
  - SCAR [None]
  - TOOTH EXTRACTION [None]
